FAERS Safety Report 21053613 (Version 1)
Quarter: 2022Q3

REPORT INFORMATION
  Report Type: Spontaneous
  Country: US (occurrence: None)
  Receive Date: 20220707
  Receipt Date: 20220707
  Transmission Date: 20221027
  Serious: Yes (Other)
  Sender: FDA-Public Use
  Company Number: None

PATIENT
  Sex: Female
  Weight: 103.5 kg

DRUGS (8)
  1. STELARA [Suspect]
     Active Substance: USTEKINUMAB
     Indication: Psoriatic arthropathy
  2. STELARA [Suspect]
     Active Substance: USTEKINUMAB
     Indication: Psoriasis
  3. clobetasol 0.05% externally [Concomitant]
  4. DULOXETINE [Concomitant]
     Active Substance: DULOXETINE
  5. IBUPROFEN [Concomitant]
     Active Substance: IBUPROFEN
  6. METHOTREXATE [Concomitant]
     Active Substance: METHOTREXATE
  7. PREGABALIN [Concomitant]
     Active Substance: PREGABALIN
  8. TRIAMCINOLONE ACETONIDE [Concomitant]
     Active Substance: TRIAMCINOLONE ACETONIDE

REACTIONS (10)
  - Drug ineffective [None]
  - Condition aggravated [None]
  - Joint range of motion decreased [None]
  - Nail dystrophy [None]
  - Dry skin [None]
  - Skin exfoliation [None]
  - Pruritus [None]
  - Swelling [None]
  - Pain [None]
  - Onychoclasis [None]
